FAERS Safety Report 8041343-2 (Version None)
Quarter: 2012Q1

REPORT INFORMATION
  Report Type: 
  Country: None (occurrence: None)
  Receive Date: 20120112
  Receipt Date: 20120106
  Transmission Date: 20120608
  Serious: No
  Sender: FDA-Public Use
  Company Number: US-PFIZER INC-2012006050

PATIENT

DRUGS (2)
  1. TOVIAZ [Suspect]
     Dosage: 12 MG, UNK
  2. TOVIAZ [Suspect]
     Dosage: 8 MG, UNK

REACTIONS (1)
  - THERAPEUTIC RESPONSE DECREASED [None]
